FAERS Safety Report 7093546-1 (Version None)
Quarter: 2010Q4

REPORT INFORMATION
  Report Type: 
  Country: None (occurrence: None)
  Receive Date: 20101102
  Receipt Date: 20101026
  Transmission Date: 20110411
  Serious: Yes (Hospitalization)
  Sender: FDA-Public Use
  Company Number: DSA_44183_2010

PATIENT
  Sex: Female

DRUGS (2)
  1. XENAZINE [Suspect]
     Indication: HUNTINGTON'S DISEASE
     Dosage: (25 MG TID)
     Dates: start: 20090301
  2. UNSPECIFIED MEDICATIONS (UNKNOWN) [Concomitant]

REACTIONS (3)
  - MEDICAL DEVICE SITE REACTION [None]
  - POST PROCEDURAL OEDEMA [None]
  - STOMATITIS [None]
